FAERS Safety Report 5657604-8 (Version None)
Quarter: 2008Q1

REPORT INFORMATION
  Report Type: 
  Country: None (occurrence: None)
  Receive Date: 20080219
  Receipt Date: 20071127
  Transmission Date: 20080703
  Serious: No
  Sender: FDA-Public Use
  Company Number: WAES 0711USA04950

PATIENT
  Age: 77 Year
  Sex: Female

DRUGS (10)
  1. JANUVIA [Suspect]
     Indication: BLOOD GLUCOSE
     Dosage: 100 MG/DAILY/PO ; 100 MG/DAILY/PO ; DAILY/PO
     Route: 048
     Dates: start: 20070401, end: 20070101
  2. JANUVIA [Suspect]
     Indication: BLOOD GLUCOSE
     Dosage: 100 MG/DAILY/PO ; 100 MG/DAILY/PO ; DAILY/PO
     Route: 048
     Dates: start: 20070201, end: 20070201
  3. JANUVIA [Suspect]
     Indication: BLOOD GLUCOSE
     Dosage: 100 MG/DAILY/PO ; 100 MG/DAILY/PO ; DAILY/PO
     Route: 048
     Dates: start: 20070401, end: 20070401
  4. ALLEGRA [Concomitant]
  5. AMARYL [Concomitant]
  6. LANOXIN [Concomitant]
  7. NORVASC [Concomitant]
  8. TOPROL-XL [Concomitant]
  9. ZOCOR [Concomitant]
  10. ASPIRIN [Concomitant]

REACTIONS (2)
  - NECK PAIN [None]
  - WRONG TECHNIQUE IN DRUG USAGE PROCESS [None]
